FAERS Safety Report 8887557 (Version 1)
Quarter: 2012Q4

REPORT INFORMATION
  Report Type: 
  Country: US (occurrence: None)
  Receive Date: 20121101
  Receipt Date: 20121101
  Transmission Date: 20130627
  Serious: No
  Sender: FDA-Public Use
  Company Number: None

PATIENT
  Sex: Male
  Weight: 72.8 kg

DRUGS (4)
  1. BLEOMYCIN [Suspect]
     Dosage: 19 unit
  2. DACARBAZINE [Suspect]
     Dosage: 716 mg
  3. DOXORUBICIN HYDROCHLORIDE [Suspect]
     Dosage: 48 mg
  4. VINBLASTINE SULFATE [Suspect]
     Dosage: 11 mg

REACTIONS (6)
  - Cough [None]
  - Pyrexia [None]
  - Nasal congestion [None]
  - Neutropenia [None]
  - Pneumonitis [None]
  - Pulmonary toxicity [None]
